FAERS Safety Report 10591505 (Version 1)
Quarter: 2014Q4

REPORT INFORMATION
  Report Type: Report from Study
  Country: US (occurrence: US)
  Receive Date: 20141118
  Receipt Date: 20141118
  Transmission Date: 20150529
  Serious: Yes (Hospitalization)
  Sender: FDA-Public Use
  Company Number: US-GILEAD-2014-0123039

PATIENT
  Age: 53 Year
  Sex: Male

DRUGS (3)
  1. RIBAVIRIN. [Concomitant]
     Active Substance: RIBAVIRIN
     Dosage: UNK
     Route: 065
     Dates: start: 201407, end: 201410
  2. SOFOSBUVIR [Suspect]
     Active Substance: SOFOSBUVIR
     Indication: PRODUCT USED FOR UNKNOWN INDICATION
     Dosage: UNK
     Route: 065
     Dates: start: 201407, end: 201410
  3. OLYSIO [Concomitant]
     Active Substance: SIMEPREVIR
     Dosage: UNK
     Route: 065
     Dates: start: 201407, end: 201410

REACTIONS (3)
  - Weight decreased [Unknown]
  - Nausea [Unknown]
  - Blood glucose increased [Unknown]
